FAERS Safety Report 5356233-3 (Version None)
Quarter: 2007Q2

REPORT INFORMATION
  Report Type: 
  Country: None (occurrence: None)
  Receive Date: 20070613
  Receipt Date: 20070530
  Transmission Date: 20071010
  Serious: Yes (Death, Hospitalization)
  Sender: FDA-Public Use
  Company Number: IS-ELI_LILLY_AND_COMPANY-IS200706001581

PATIENT
  Age: 61 Year

DRUGS (1)
  1. GEMZAR [Suspect]
     Indication: NEOPLASM MALIGNANT

REACTIONS (2)
  - DISEASE PROGRESSION [None]
  - THROMBOTIC MICROANGIOPATHY [None]
